FAERS Safety Report 17605606 (Version 1)
Quarter: 2020Q1

REPORT INFORMATION
  Report Type: Spontaneous
  Country: US (occurrence: US)
  Receive Date: 20200331
  Receipt Date: 20200331
  Transmission Date: 20200409
  Serious: No
  Sender: FDA-Public Use
  Company Number: None

PATIENT
  Age: 80 Year
  Sex: Female
  Weight: 76.95 kg

DRUGS (5)
  1. LEVOTHYROXINE 125MCG DAILY [Concomitant]
     Dates: start: 19950101
  2. TROSPIUM [Suspect]
     Active Substance: TROSPIUM
     Indication: HYPERTONIC BLADDER
     Route: 048
     Dates: start: 20200131, end: 20200224
  3. ANASTROZOLE 1MG DAILY [Concomitant]
     Active Substance: ANASTROZOLE
     Dates: start: 20190225
  4. DILTIAZEM CD 180MG BID [Concomitant]
     Dates: start: 20191101
  5. ASPIRIN 81MG DAILY [Concomitant]
     Active Substance: ASPIRIN
     Dates: start: 20190331

REACTIONS (2)
  - Abdominal discomfort [None]
  - Diarrhoea [None]

NARRATIVE: CASE EVENT DATE: 20200131
